FAERS Safety Report 16474326 (Version 1)
Quarter: 2019Q2

REPORT INFORMATION
  Report Type: Spontaneous
  Country: US (occurrence: US)
  Receive Date: 20190515
  Receipt Date: 20190515
  Transmission Date: 20190711
  Serious: Yes (Death, Life-Threatening, Hospitalization, Disabling)
  Sender: FDA-Public Use
  Company Number: None

PATIENT
  Age: 80 Year
  Sex: Female

DRUGS (1)
  1. CLONAZEPAM 0.5MG [Suspect]
     Active Substance: CLONAZEPAM
     Indication: PRODUCT USED FOR UNKNOWN INDICATION
     Dates: start: 20180318

REACTIONS (13)
  - Cardiac disorder [None]
  - Stress [None]
  - Toxicity to various agents [None]
  - Dyspnoea [None]
  - Diabetes mellitus [None]
  - Cardiac failure congestive [None]
  - Brain neoplasm malignant [None]
  - Organ failure [None]
  - Hypertension [None]
  - Neoplasm malignant [None]
  - Infection [None]
  - Mental disorder [None]
  - Renal impairment [None]

NARRATIVE: CASE EVENT DATE: 201811
